FAERS Safety Report 4627846-9 (Version None)
Quarter: 2005Q2

REPORT INFORMATION
  Report Type: 
  Country: None (occurrence: None)
  Receive Date: 20050401
  Receipt Date: 20050323
  Transmission Date: 20051028
  Serious: Yes (Hospitalization)
  Sender: FDA-Public Use
  Company Number: 2005SE01754

PATIENT
  Age: 74 Year
  Sex: Male

DRUGS (5)
  1. BLOPRESS [Suspect]
     Indication: HYPERTENSION
     Dosage: 8 MG QD PO
     Route: 048
     Dates: start: 20011222, end: 20041229
  2. BLOPRESS [Suspect]
     Indication: HYPERTENSION
     Dosage: 4 MG QD PO
     Route: 048
     Dates: start: 20041230
  3. CALCIUM CHANNEL BLOCKERS [Concomitant]
  4. SULFONAMIDES, UREA DERIVATIVES [Concomitant]
  5. ALPHA GLUCOSIDASE INHIBITORS [Concomitant]

REACTIONS (1)
  - CEREBRAL INFARCTION [None]
